FAERS Safety Report 13056668 (Version 3)
Quarter: 2020Q4

REPORT INFORMATION
  Report Type: Report from Study
  Country: BR (occurrence: BR)
  Receive Date: 20161222
  Receipt Date: 20201203
  Transmission Date: 20210113
  Serious: Yes (Hospitalization)
  Sender: FDA-Public Use
  Company Number: BR-BIOGEN-2016BI00334198

PATIENT
  Sex: Male

DRUGS (2)
  1. AVONEX [Suspect]
     Active Substance: INTERFERON BETA-1A
     Indication: MULTIPLE SCLEROSIS
     Dosage: ON SUNDAYS
     Route: 065
  2. AVONEX PEN [Suspect]
     Active Substance: INTERFERON BETA-1A
     Indication: MULTIPLE SCLEROSIS
     Route: 030
     Dates: start: 201602

REACTIONS (9)
  - Pain [Unknown]
  - Colitis ulcerative [Recovered/Resolved]
  - Pyrexia [Recovered/Resolved]
  - Feeling cold [Unknown]
  - Internal haemorrhage [Recovered/Resolved]
  - Haemorrhage [Unknown]
  - Haematochezia [Recovered/Resolved]
  - Asthenia [Unknown]
  - Gastrointestinal pain [Recovered/Resolved]

NARRATIVE: CASE EVENT DATE: 2016
